FAERS Safety Report 10220928 (Version 1)
Quarter: 2014Q2

REPORT INFORMATION
  Report Type: Report from Study
  Country: US (occurrence: US)
  Receive Date: 20140606
  Receipt Date: 20140606
  Transmission Date: 20141212
  Serious: No
  Sender: FDA-Public Use
  Company Number: US-ASTRAZENECA-2014SE36446

PATIENT
  Age: 78 Year
  Sex: Female

DRUGS (1)
  1. BRILINTA [Suspect]
     Indication: ACUTE CORONARY SYNDROME
     Dosage: 90 BID
     Route: 048

REACTIONS (2)
  - Gout [Unknown]
  - Vascular rupture [Unknown]
